FAERS Safety Report 10352624 (Version 1)
Quarter: 2014Q3

REPORT INFORMATION
  Report Type: Spontaneous
  Country: US (occurrence: US)
  Receive Date: 20140730
  Receipt Date: 20140730
  Transmission Date: 20150326
  Serious: No
  Sender: FDA-Public Use
  Company Number: US-ABBVIE-14P-163-1193471-00

PATIENT
  Sex: Female

DRUGS (1)
  1. SYNTHROID [Suspect]
     Active Substance: LEVOTHYROXINE SODIUM
     Indication: PRODUCT USED FOR UNKNOWN INDICATION

REACTIONS (10)
  - Anxiety [Unknown]
  - Oropharyngeal pain [Unknown]
  - Nasal congestion [Unknown]
  - Malabsorption [Unknown]
  - Rash [Unknown]
  - Headache [Unknown]
  - Laboratory test abnormal [Unknown]
  - Lacrimation increased [Unknown]
  - Panic attack [Unknown]
  - Pain [Unknown]
